FAERS Safety Report 16754252 (Version 5)
Quarter: 2024Q2

REPORT INFORMATION
  Report Type: Report from Study
  Country: US (occurrence: US)
  Receive Date: 20190829
  Receipt Date: 20240628
  Transmission Date: 20240716
  Serious: Yes (Death, Other)
  Sender: FDA-Public Use
  Company Number: US-AKCEA THERAPEUTICS-2019IS001680

PATIENT

DRUGS (1)
  1. INOTERSEN [Suspect]
     Active Substance: INOTERSEN
     Indication: Cardiac amyloidosis
     Dosage: 284 MILLIGRAM, QOW (EVERY 2 WEEKS)

REACTIONS (2)
  - Glomerulonephritis [Fatal]
  - Off label use [Unknown]

NARRATIVE: CASE EVENT DATE: 20181201
